FAERS Safety Report 8203265-3 (Version None)
Quarter: 2012Q1

REPORT INFORMATION
  Report Type: 
  Country: None (occurrence: None)
  Receive Date: 20120312
  Receipt Date: 20120307
  Transmission Date: 20120608
  Serious: Yes (Hospitalization)
  Sender: FDA-Public Use
  Company Number: FR-ROCHE-1046527

PATIENT
  Sex: Female
  Weight: 45 kg

DRUGS (4)
  1. BORTEZOMIB [Suspect]
     Indication: MANTLE CELL LYMPHOMA
     Dosage: ADMINISTERED ON DAY 1 AND DAY 4.
     Route: 058
     Dates: start: 20120201, end: 20120206
  2. DEXAMETHASONE [Suspect]
     Indication: MANTLE CELL LYMPHOMA
     Route: 065
     Dates: start: 20120202
  3. MABTHERA [Suspect]
     Indication: MANTLE CELL LYMPHOMA
     Route: 041
     Dates: start: 20120201
  4. BENDAMUSTINE [Suspect]
     Indication: MANTLE CELL LYMPHOMA
     Dosage: STRENGTH: 2.5 MG/ML
     Route: 041
     Dates: start: 20120201, end: 20120202

REACTIONS (1)
  - GENERALISED OEDEMA [None]
